FAERS Safety Report 23352905 (Version 1)
Quarter: 2023Q4

REPORT INFORMATION
  Report Type: Spontaneous
  Country: CN (occurrence: CN)
  Receive Date: 20231230
  Receipt Date: 20231230
  Transmission Date: 20240110
  Serious: Yes (Death, Life-Threatening, Other)
  Sender: FDA-Public Use
  Company Number: CN-AMGEN-CHNSP2023230179

PATIENT

DRUGS (9)
  1. FILGRASTIM [Suspect]
     Active Substance: FILGRASTIM
     Indication: Product used for unknown indication
     Dosage: 300 MICROGRAM DAILY
     Route: 065
  2. PEGFILGRASTIM [Suspect]
     Active Substance: PEGFILGRASTIM
     Indication: Product used for unknown indication
     Dosage: 6 MILLIGRAM, QWK
     Route: 065
  3. VENETOCLAX [Concomitant]
     Active Substance: VENETOCLAX
     Indication: Acute myeloid leukaemia
     Dosage: 400 MILLIGRAM DAILY
     Route: 065
  4. VENETOCLAX [Concomitant]
     Active Substance: VENETOCLAX
     Dosage: 100 MILLIGRAM DAILY
     Route: 065
  5. DECITABINE [Concomitant]
     Active Substance: DECITABINE
     Indication: Acute myeloid leukaemia
     Dosage: 20 MILLIGRAM/SQ. METER D1-5
     Route: 042
  6. CYTARABINE [Concomitant]
     Active Substance: CYTARABINE
     Indication: Acute myeloid leukaemia
     Dosage: 50-100 MG/M^2 DAILY D1-5
     Route: 042
  7. ACLARUBICIN HYDROCHLORIDE [Concomitant]
     Active Substance: ACLARUBICIN HYDROCHLORIDE
     Indication: Acute myeloid leukaemia
     Dosage: 20 MILLIGRAM DAILY D1/3/5 AND D1-5
     Route: 042
  8. AZACITIDINE [Concomitant]
     Active Substance: AZACITIDINE
     Indication: Acute myeloid leukaemia
     Dosage: 50-75 MG/M^2 D1-7
     Route: 058
  9. ALBENDAZOLE [Concomitant]
     Active Substance: ALBENDAZOLE
     Dosage: D1-14
     Route: 048

REACTIONS (27)
  - Acute myeloid leukaemia refractory [Fatal]
  - Death [Fatal]
  - Neutropenia [Unknown]
  - Pneumonia [Unknown]
  - Gastrointestinal disorder [Unknown]
  - Electrolyte imbalance [Unknown]
  - Thrombocytopenia [Unknown]
  - Anaemia [Unknown]
  - Pyrexia [Unknown]
  - Multiple organ dysfunction syndrome [Unknown]
  - Leukopenia [Unknown]
  - Epistaxis [Unknown]
  - Skin bacterial infection [Unknown]
  - Abdominal pain [Unknown]
  - Neoplasm progression [Unknown]
  - Haematological infection [Unknown]
  - Mucosal haemorrhage [Unknown]
  - Hepatic function abnormal [Unknown]
  - Blood culture positive [Unknown]
  - Rash [Unknown]
  - Fatigue [Unknown]
  - Nausea [Unknown]
  - Vomiting [Unknown]
  - Diarrhoea [Unknown]
  - Asthenia [Unknown]
  - Haemoglobin decreased [Unknown]
  - Constipation [Unknown]
